FAERS Safety Report 9500054 (Version 1)
Quarter: 2013Q1

REPORT INFORMATION
  Report Type: Spontaneous
  Country: US (occurrence: None)
  Receive Date: 20130107
  Receipt Date: 20130107
  Transmission Date: 20140127
  Serious: Yes (Other)
  Sender: FDA-Public Use
  Company Number: PHEH2012US023437

PATIENT
  Age: 59 Year
  Sex: Female
  Weight: 72.6 kg

DRUGS (8)
  1. GILENYA [Suspect]
     Indication: MULTIPLE SCLEROSIS
     Route: 048
     Dates: start: 20121112, end: 20121124
  2. ARICEPT [Concomitant]
  3. WELLBURTIN [Concomitant]
  4. LYRICA [Concomitant]
  5. DEPAKOTE [Concomitant]
  6. SINGULAR [Concomitant]
  7. DETROL [Concomitant]
  8. DIOVAN [Concomitant]

REACTIONS (1)
  - Blood pressure increased [None]
